FAERS Safety Report 8805144 (Version 1)
Quarter: 2012Q4

REPORT INFORMATION
  Report Type: 
  Country: US (occurrence: US)
  Receive Date: 20120924
  Receipt Date: 20120924
  Transmission Date: 20130627
  Serious: No
  Sender: FDA-Public Use
  Company Number: US-ALLERGAN-1208514US

PATIENT
  Age: 82 Year
  Sex: Female

DRUGS (4)
  1. LUMIGAN� 0.01% [Suspect]
     Indication: GLAUCOMA
     Dosage: 2 Gtt, qhs
     Route: 047
     Dates: start: 20120502
  2. REFRESH TEARS [Concomitant]
     Indication: DRY EYES
     Dosage: UNK
     Route: 047
  3. PRAVASTATIN [Concomitant]
     Indication: HIGH CHOLESTEROL
     Dosage: 40 mg, UNK
  4. AVAPRO [Concomitant]
     Indication: BLOOD PRESSURE HIGH

REACTIONS (6)
  - Inappropriate schedule of drug administration [Unknown]
  - Scleral hyperaemia [Not Recovered/Not Resolved]
  - Eyelid sensory disorder [Not Recovered/Not Resolved]
  - Eyelid disorder [Not Recovered/Not Resolved]
  - Vision blurred [Not Recovered/Not Resolved]
  - Foreign body in eye [Not Recovered/Not Resolved]
